FAERS Safety Report 8904554 (Version 2)
Quarter: 2012Q4

REPORT INFORMATION
  Report Type: 
  Country: KR (occurrence: KR)
  Receive Date: 20121113
  Receipt Date: 20121126
  Transmission Date: 20130627
  Serious: Yes (Hospitalization)
  Sender: FDA-Public Use
  Company Number: KR-ELI_LILLY_AND_COMPANY-KR201211000274

PATIENT
  Age: 50 Year
  Sex: Female
  Weight: 62 kg

DRUGS (1)
  1. CYMBALTA [Suspect]
     Indication: DIABETIC NEUROPATHY
     Dosage: 60 mg, qd
     Route: 048
     Dates: start: 20121004

REACTIONS (1)
  - Pneumonia [Recovering/Resolving]
